FAERS Safety Report 18517931 (Version 4)
Quarter: 2021Q2

REPORT INFORMATION
  Report Type: Report from Study
  Country: None (occurrence: US)
  Receive Date: 20201118
  Receipt Date: 20210511
  Transmission Date: 20210717
  Serious: Yes (Hospitalization, Other)
  Sender: FDA-Public Use
  Company Number: US-BIOVITRUM-2020US6306

PATIENT
  Age: 48 Year
  Sex: Female

DRUGS (1)
  1. KINERET [Suspect]
     Active Substance: ANAKINRA
     Indication: PERICARDIAL DISEASE
     Route: 058
     Dates: start: 20190409

REACTIONS (6)
  - Off label use [Not Recovered/Not Resolved]
  - Hepatic enzyme increased [Unknown]
  - Sinusitis [Unknown]
  - Product dose omission issue [Unknown]
  - Hepatic infection [Unknown]
  - Anaemia [Unknown]

NARRATIVE: CASE EVENT DATE: 20190409
